FAERS Safety Report 11429795 (Version 1)
Quarter: 2015Q3

REPORT INFORMATION
  Report Type: Spontaneous
  Country: US (occurrence: US)
  Receive Date: 20150828
  Receipt Date: 20150828
  Transmission Date: 20151125
  Serious: No
  Sender: FDA-Public Use
  Company Number: US-ROCHE-1193394

PATIENT
  Weight: 89.44 kg

DRUGS (5)
  1. PEGASYS [Suspect]
     Active Substance: PEGINTERFERON ALFA-2A
     Indication: CHRONIC HEPATITIS C
     Route: 058
     Dates: start: 20121109
  2. RIBASPHERE [Suspect]
     Active Substance: RIBAVIRIN
     Route: 048
     Dates: start: 20130211
  3. TELAPREVIR [Suspect]
     Active Substance: TELAPREVIR
     Indication: CHRONIC HEPATITIS C
     Route: 048
     Dates: start: 20121109
  4. RIBASPHERE [Suspect]
     Active Substance: RIBAVIRIN
     Route: 048
     Dates: start: 201212
  5. RIBASPHERE [Suspect]
     Active Substance: RIBAVIRIN
     Indication: CHRONIC HEPATITIS C
     Route: 048
     Dates: start: 20121109

REACTIONS (5)
  - Diarrhoea [Unknown]
  - Dyspnoea exertional [Unknown]
  - Weight decreased [Unknown]
  - Anaemia [Unknown]
  - Platelet count abnormal [Unknown]
